FAERS Safety Report 7971569-5 (Version None)
Quarter: 2011Q4

REPORT INFORMATION
  Report Type: 
  Country: None (occurrence: None)
  Receive Date: 20111212
  Receipt Date: 20111129
  Transmission Date: 20120403
  Serious: No
  Sender: FDA-Public Use
  Company Number: US-B.I. PHARMACEUTICALS,INC./RIDGEFIELD-2011-BP-27006BP

PATIENT
  Sex: Male

DRUGS (7)
  1. FLOMAX [Concomitant]
     Indication: BENIGN PROSTATIC HYPERPLASIA
     Route: 048
  2. CLONIDINE [Concomitant]
     Indication: BLOOD PRESSURE FLUCTUATION
     Route: 048
  3. SIMVASTATIN [Concomitant]
     Indication: BLOOD CHOLESTEROL INCREASED
     Dosage: 80 MG
     Route: 048
  4. METOPROLOL TARTRATE [Concomitant]
     Indication: TACHYCARDIA
     Dosage: 50 MG
     Route: 048
  5. CATAPRES-TTS-1 [Suspect]
     Indication: BLOOD PRESSURE FLUCTUATION
     Dosage: 0.2 MG
     Route: 061
     Dates: start: 20110201
  6. ALLOPURINOL [Concomitant]
     Indication: NEPHROLITHIASIS
     Dosage: 100 MG
     Route: 048
  7. ASPIRIN [Concomitant]
     Indication: PROPHYLAXIS
     Dosage: 81 MG
     Route: 048

REACTIONS (8)
  - DERMATITIS ALLERGIC [None]
  - APPLICATION SITE VESICLES [None]
  - APPLICATION SITE DISCOLOURATION [None]
  - APPLICATION SITE EXFOLIATION [None]
  - CONDITION AGGRAVATED [None]
  - APPLICATION SITE URTICARIA [None]
  - APPLICATION SITE PRURITUS [None]
  - APPLICATION SITE ERYTHEMA [None]
